FAERS Safety Report 5629139-X (Version None)
Quarter: 2008Q1

REPORT INFORMATION
  Report Type: 
  Country: None (occurrence: None)
  Receive Date: 20080216
  Receipt Date: 20080213
  Transmission Date: 20080703
  Serious: Yes (Life-Threatening)
  Sender: FDA-Public Use
  Company Number: US-BAXTER-2008BH001168

PATIENT
  Age: 46 Year
  Sex: Male
  Weight: 76 kg

DRUGS (1)
  1. HEPARIN SODIUM [Suspect]
     Indication: PROPHYLAXIS
     Route: 040
     Dates: start: 20080207, end: 20080207

REACTIONS (2)
  - HYPOTENSION [None]
  - VASCULAR RESISTANCE SYSTEMIC DECREASED [None]
